FAERS Safety Report 16727652 (Version 1)
Quarter: 2019Q3

REPORT INFORMATION
  Report Type: Spontaneous
  Country: US (occurrence: US)
  Receive Date: 20190822
  Receipt Date: 20190822
  Transmission Date: 20191005
  Serious: No
  Sender: FDA-Public Use
  Company Number: US-CELGENEUS-USA-20190804804

PATIENT
  Age: 60 Year
  Sex: Female

DRUGS (6)
  1. OTEZLA [Suspect]
     Active Substance: APREMILAST
     Dosage: 20MG IN AM AND 20MG IN PM
     Route: 048
     Dates: start: 20190718
  2. OTEZLA [Suspect]
     Active Substance: APREMILAST
     Dosage: 10MG IN AM AND 20MG IN PM
     Route: 048
     Dates: start: 20190717
  3. OTEZLA [Suspect]
     Active Substance: APREMILAST
     Dosage: 10 MILLIGRAM IN AM AND PM
     Route: 048
     Dates: start: 20190716
  4. OTEZLA [Suspect]
     Active Substance: APREMILAST
     Dosage: 60 MILLIGRAM
     Route: 048
     Dates: start: 20190720
  5. OTEZLA [Suspect]
     Active Substance: APREMILAST
     Indication: PSORIASIS
     Dosage: 10 MILLIGRAM IN AM
     Route: 048
     Dates: start: 20190715
  6. OTEZLA [Suspect]
     Active Substance: APREMILAST
     Dosage: 20MG IN AM AND 30MG IN PM
     Route: 048
     Dates: start: 20190719

REACTIONS (3)
  - Insomnia [Not Recovered/Not Resolved]
  - Muscle spasms [Not Recovered/Not Resolved]
  - Headache [Not Recovered/Not Resolved]

NARRATIVE: CASE EVENT DATE: 20190722
